FAERS Safety Report 6635264-7 (Version None)
Quarter: 2010Q1

REPORT INFORMATION
  Report Type: 
  Country: None (occurrence: None)
  Receive Date: 20100315
  Receipt Date: 20100310
  Transmission Date: 20100710
  Serious: Yes (Hospitalization)
  Sender: FDA-Public Use
  Company Number: FR-WYE-G05720010

PATIENT
  Age: 48 Year
  Sex: Male

DRUGS (7)
  1. TAZOCILLINE [Suspect]
     Indication: PNEUMONIA
     Dosage: UNKNOWN
     Route: 042
     Dates: start: 20100119, end: 20100206
  2. CIPROFLOXACIN HCL [Suspect]
     Indication: PNEUMONIA
     Dosage: UNKNOWN
     Dates: start: 20091225, end: 20100206
  3. FLAGYL [Suspect]
     Indication: PNEUMONIA
     Dosage: UNKNOWN
     Dates: start: 20091230, end: 20100119
  4. FORTUM [Suspect]
     Indication: PNEUMONIA
     Dosage: UNKNOWN
     Dates: start: 20091230, end: 20100119
  5. VANCOMYCIN [Suspect]
     Indication: PNEUMONIA
     Dosage: UNKNOWN
     Dates: start: 20091230, end: 20100206
  6. AUGMENTIN [Suspect]
     Indication: PNEUMONIA
     Dosage: UNKNOWN
     Dates: start: 20091225, end: 20091230
  7. AMIKACIN [Suspect]
     Indication: PNEUMONIA
     Dosage: UNKNOWN
     Dates: start: 20091225, end: 20091230

REACTIONS (5)
  - CHEILITIS [None]
  - DRUG RASH WITH EOSINOPHILIA AND SYSTEMIC SYMPTOMS [None]
  - HAEMOGLOBIN DECREASED [None]
  - SKIN EXFOLIATION [None]
  - TONGUE EXFOLIATION [None]
